FAERS Safety Report 9029051 (Version 1)
Quarter: 2013Q1

REPORT INFORMATION
  Report Type: Spontaneous
  Country: CH (occurrence: CH)
  Receive Date: 20130122
  Receipt Date: 20130122
  Transmission Date: 20140127
  Serious: Yes (Other)
  Sender: FDA-Public Use
  Company Number: CH-ASTRAZENECA-2013SE02717

PATIENT
  Age: 69 Year
  Sex: Female

DRUGS (2)
  1. NEXIUM [Suspect]
     Indication: GASTRIC ULCER HAEMORRHAGE
     Dosage: 1 DF EVERY FOUR HOURS / 8MG/H
     Route: 042
     Dates: start: 20121217, end: 20121217
  2. LASIX [Suspect]
     Indication: FLUID OVERLOAD
     Dosage: 1 DF EVERY FOUR HOURS / 8MG/H (TOTAL WAS 32 MG)
     Route: 042
     Dates: start: 20121217, end: 20121217

REACTIONS (5)
  - Hypokalaemia [Recovered/Resolved]
  - Electrocardiogram abnormal [Recovered/Resolved]
  - Hypernatraemia [Recovered/Resolved]
  - Dehydration [Recovered/Resolved]
  - Wrong drug administered [Recovered/Resolved]
